FAERS Safety Report 8624437-X (Version None)
Quarter: 2012Q3

REPORT INFORMATION
  Report Type: 
  Country: None (occurrence: None)
  Receive Date: 20120827
  Receipt Date: 20120822
  Transmission Date: 20120928
  Serious: Yes (Other)
  Sender: FDA-Public Use
  Company Number: US-PFIZER INC-2012149516

PATIENT
  Age: 64 Year
  Sex: Female
  Weight: 71.7 kg

DRUGS (2)
  1. TRAZODONE [Concomitant]
     Dosage: 50 MG, DAILY
  2. EFFEXOR XR [Suspect]
     Indication: DEPRESSION
     Dosage: 75 MG, DAILY

REACTIONS (1)
  - LUNG NEOPLASM MALIGNANT [None]
